FAERS Safety Report 7228255-9 (Version None)
Quarter: 2011Q1

REPORT INFORMATION
  Report Type: 
  Country: None (occurrence: None)
  Receive Date: 20110114
  Receipt Date: 20110103
  Transmission Date: 20110831
  Serious: Yes (Other)
  Sender: FDA-Public Use
  Company Number: AU-GENENTECH-312167

PATIENT

DRUGS (3)
  1. RITUXIMAB [Suspect]
     Indication: WALDENSTROM'S MACROGLOBULINAEMIA
     Dosage: 375 MG/M2, UNK
     Route: 042
  2. FLUDARABINE [Suspect]
     Indication: WALDENSTROM'S MACROGLOBULINAEMIA
     Dosage: UNK
     Route: 042
  3. CYCLOPHOSPHAMIDE [Suspect]
     Indication: WALDENSTROM'S MACROGLOBULINAEMIA
     Dosage: 250 MG/M2, UNK
     Route: 042

REACTIONS (6)
  - MYELODYSPLASTIC SYNDROME [None]
  - HERPES ZOSTER [None]
  - INFECTION [None]
  - NEUTROPENIA [None]
  - NAUSEA [None]
  - THROMBOCYTOPENIA [None]
